FAERS Safety Report 20309042 (Version 1)
Quarter: 2022Q1

REPORT INFORMATION
  Report Type: Spontaneous
  Country: FR (occurrence: FR)
  Receive Date: 20220107
  Receipt Date: 20220107
  Transmission Date: 20220424
  Serious: Yes (Hospitalization)
  Sender: FDA-Public Use
  Company Number: None

PATIENT
  Age: 48 Year
  Sex: Male
  Weight: 68 kg

DRUGS (1)
  1. TEDUGLUTIDE [Suspect]
     Active Substance: TEDUGLUTIDE
     Indication: Short-bowel syndrome
     Dosage: 3.4 MILLIGRAM
     Route: 058
     Dates: start: 20190524

REACTIONS (1)
  - Colon adenoma [Recovered/Resolved]

NARRATIVE: CASE EVENT DATE: 20200507
